FAERS Safety Report 19094536 (Version 1)
Quarter: 2021Q2

REPORT INFORMATION
  Report Type: Spontaneous
  Country: US (occurrence: US)
  Receive Date: 20210405
  Receipt Date: 20210405
  Transmission Date: 20210717
  Serious: No
  Sender: FDA-Public Use
  Company Number: US-JAZZ-2020-US-017296

PATIENT
  Sex: Female
  Weight: 49.89 kg

DRUGS (9)
  1. XYREM [Concomitant]
     Active Substance: SODIUM OXYBATE
     Dosage: 4.5 GRAM, BID
     Dates: start: 201904
  2. SUNOSI [Suspect]
     Active Substance: SOLRIAMFETOL
     Indication: CATAPLEXY
  3. XYREM [Concomitant]
     Active Substance: SODIUM OXYBATE
     Indication: CATAPLEXY
     Dosage: 3 GRAM AT HS THEN 2 1/2?4HRS LATER TAKE 2.75GRAM
     Dates: start: 202006
  4. XYREM [Concomitant]
     Active Substance: SODIUM OXYBATE
     Dosage: 3.75 GRAM, BID
     Dates: start: 201903
  5. SUNOSI [Suspect]
     Active Substance: SOLRIAMFETOL
     Indication: NARCOLEPSY
     Dosage: 150 MILLIGRAM, QD
  6. XYREM [Concomitant]
     Active Substance: SODIUM OXYBATE
     Dosage: 2.25 GRAM, BID
     Dates: start: 201903
  7. XYREM [Concomitant]
     Active Substance: SODIUM OXYBATE
     Dosage: 3 GRAM, BID
     Dates: start: 201903
  8. XYREM [Concomitant]
     Active Substance: SODIUM OXYBATE
     Dosage: 3 GRAM AT HS THEN 2 1/2?4HRS LATER 3.25 GRAM
     Dates: start: 201906
  9. XYREM [Concomitant]
     Active Substance: SODIUM OXYBATE
     Indication: NARCOLEPSY
     Dosage: 3GRAM AT HS THEN 2 1/2?4HRS LATER TAKE 3.2GRAM
     Dates: start: 202012

REACTIONS (2)
  - Tachycardia [Unknown]
  - Feeling jittery [Unknown]
